FAERS Safety Report 15304202 (Version 1)
Quarter: 2018Q3

REPORT INFORMATION
  Report Type: Report from Study
  Country: US (occurrence: US)
  Receive Date: 20180821
  Receipt Date: 20180821
  Transmission Date: 20181010
  Serious: No
  Sender: FDA-Public Use
  Company Number: US-AMGEN INC.-USASL2018096017

PATIENT
  Age: 67 Year
  Sex: Male

DRUGS (1)
  1. AIMOVIG [Suspect]
     Active Substance: ERENUMAB-AOOE
     Indication: MIGRAINE PROPHYLAXIS
     Dosage: 70 MG, QMO
     Route: 065
     Dates: start: 20180630

REACTIONS (9)
  - Paranasal sinus hypersecretion [Unknown]
  - Drug ineffective [Unknown]
  - Fatigue [Recovered/Resolved]
  - Pharyngeal erythema [Unknown]
  - Chest discomfort [Recovered/Resolved]
  - Migraine [Unknown]
  - Sluggishness [Recovered/Resolved]
  - Constipation [Unknown]
  - Ear discomfort [Unknown]

NARRATIVE: CASE EVENT DATE: 2018
